FAERS Safety Report 8005789-0 (Version None)
Quarter: 2011Q4

REPORT INFORMATION
  Report Type: 
  Country: None (occurrence: None)
  Receive Date: 20111223
  Receipt Date: 20111221
  Transmission Date: 20120403
  Serious: Yes (Death, Other)
  Sender: FDA-Public Use
  Company Number: DE-BRISTOL-MYERS SQUIBB COMPANY-16310658

PATIENT
  Age: 71 Year
  Sex: Female

DRUGS (7)
  1. LITHIUM CARBONATE [Suspect]
     Indication: MANIA
     Dosage: 1 DF : 1TAB,600MG,900MG;MAR11
  2. LITHIUM CARBONATE [Suspect]
     Indication: BIPOLAR DISORDER
     Dosage: 1 DF : 1TAB,600MG,900MG;MAR11
  3. ABILIFY [Suspect]
     Indication: MANIA
     Dosage: RESTARTED ON 28MAY11-29MAY11;10MG,24JUN11-UNTIL DEATH
     Dates: start: 20110524
  4. HALDOL [Suspect]
     Indication: MANIA
     Dosage: 15MG;MAR11,5MG
  5. SOLIAN [Concomitant]
  6. HALDOL [Suspect]
     Indication: BIPOLAR DISORDER
     Dosage: 15MG;MAR11,5MG
  7. DOMINAL [Suspect]
     Indication: MANIA
     Dosage: NIGHT
     Dates: start: 20110524

REACTIONS (7)
  - SPEECH DISORDER [None]
  - DEATH [None]
  - COMA [None]
  - DEHYDRATION [None]
  - EATING DISORDER [None]
  - SOMNOLENCE [None]
  - ABASIA [None]
